FAERS Safety Report 16246869 (Version 1)
Quarter: 2019Q2

REPORT INFORMATION
  Report Type: Spontaneous
  Country: FR (occurrence: FR)
  Receive Date: 20190427
  Receipt Date: 20190427
  Transmission Date: 20190711
  Serious: Yes (Death, Other)
  Sender: FDA-Public Use
  Company Number: FR-ACCORD-124439

PATIENT
  Age: 54 Year
  Sex: Male
  Weight: 97 kg

DRUGS (9)
  1. APIDRA [Concomitant]
     Active Substance: INSULIN GLULISINE
     Indication: TYPE 2 DIABETES MELLITUS
     Dosage: 75 UNITS / DAY
     Route: 058
     Dates: end: 20190103
  2. CORTANCYL [Concomitant]
     Active Substance: PREDNISONE
     Route: 048
     Dates: start: 2018, end: 20190114
  3. ASPIRIN PROTECT [Concomitant]
     Active Substance: ASPIRIN
     Indication: THROMBOSIS PROPHYLAXIS
     Dosage: STRENGTH: 100 MG
     Route: 048
     Dates: end: 20190107
  4. COUMADINE [Concomitant]
     Active Substance: WARFARIN SODIUM
     Indication: THROMBOSIS PROPHYLAXIS
     Route: 048
     Dates: start: 2013, end: 20190107
  5. TOUJEO [Concomitant]
     Active Substance: INSULIN GLARGINE
     Indication: TYPE 2 DIABETES MELLITUS
     Dosage: 50 UNITS / DAY
     Route: 058
     Dates: end: 20190103
  6. METHOTREXATE. [Suspect]
     Active Substance: METHOTREXATE
     Indication: RASH PAPULAR
     Route: 048
     Dates: start: 20181227, end: 20190102
  7. DESLORATADINE. [Concomitant]
     Active Substance: DESLORATADINE
     Route: 048
     Dates: start: 20181226, end: 20190114
  8. ATARAX [Concomitant]
     Active Substance: HYDROXYZINE HYDROCHLORIDE
     Indication: PRURITUS
     Dosage: STRENGTH: 25 MG
     Route: 048
     Dates: start: 2018, end: 20190114
  9. POLARAMINE [Concomitant]
     Active Substance: DEXCHLORPHENIRAMINE MALEATE
     Indication: RASH PAPULAR
     Route: 048
     Dates: start: 2018, end: 20181226

REACTIONS (4)
  - Mouth ulceration [Not Recovered/Not Resolved]
  - Inappropriate schedule of product administration [Fatal]
  - Accidental overdose [Fatal]
  - Pancytopenia [Fatal]

NARRATIVE: CASE EVENT DATE: 20181227
